FAERS Safety Report 18192264 (Version 1)
Quarter: 2020Q3

REPORT INFORMATION
  Report Type: Spontaneous
  Country: US (occurrence: US)
  Receive Date: 20200825
  Receipt Date: 20200825
  Transmission Date: 20201103
  Serious: No
  Sender: FDA-Public Use
  Company Number: None

PATIENT
  Age: 39 Year
  Sex: Male
  Weight: 90 kg

DRUGS (2)
  1. VITAMIN B12 [Concomitant]
     Active Substance: CYANOCOBALAMIN
  2. BLUMEN CLEAR ADVANCED HAND SANITIZER [Suspect]
     Active Substance: ALCOHOL
     Indication: COVID-19 PROPHYLAXIS
     Dosage: ?          QUANTITY:1 DROP(S);?
     Route: 061
     Dates: start: 20200818, end: 20200818

REACTIONS (5)
  - Recalled product administered [None]
  - Blister [None]
  - Chemical burn of skin [None]
  - Sensory loss [None]
  - Application site burn [None]

NARRATIVE: CASE EVENT DATE: 20200818
